FAERS Safety Report 22079633 (Version 2)
Quarter: 2023Q1

REPORT INFORMATION
  Report Type: Spontaneous
  Country: US (occurrence: US)
  Receive Date: 20230309
  Receipt Date: 20230323
  Transmission Date: 20230417
  Serious: Yes (Hospitalization)
  Sender: FDA-Public Use
  Company Number: US-TEVA-2023-US-2862320

PATIENT
  Age: 4 Decade
  Sex: Male

DRUGS (2)
  1. METHYLPREDNISOLONE [Suspect]
     Active Substance: METHYLPREDNISOLONE
     Indication: Acute disseminated encephalomyelitis
     Dosage: 1 GRAM DAILY; HIGH-DOSE 1G ONCE DAILY; SCHEDULED FOR 6 DAYS
     Route: 042
  2. Immunoglobulin [Concomitant]
     Indication: Acute disseminated encephalomyelitis
     Dosage: 2 G/KG
     Route: 042

REACTIONS (2)
  - Gastric ulcer [Unknown]
  - Upper gastrointestinal haemorrhage [Unknown]
